FAERS Safety Report 8063633-X (Version None)
Quarter: 2012Q1

REPORT INFORMATION
  Report Type: 
  Country: None (occurrence: None)
  Receive Date: 20120123
  Receipt Date: 20120116
  Transmission Date: 20120608
  Serious: Yes (Hospitalization, Other)
  Sender: FDA-Public Use
  Company Number: FR-JNJFOC-20111200062

PATIENT
  Age: 34 Month
  Sex: Female
  Weight: 11 kg

DRUGS (2)
  1. MINOXIDIL [Suspect]
     Route: 048
  2. MINOXIDIL [Suspect]
     Indication: ACCIDENTAL EXPOSURE
     Route: 048
     Dates: start: 20110101, end: 20110101

REACTIONS (7)
  - ACCIDENTAL DRUG INTAKE BY CHILD [None]
  - VOMITING [None]
  - FLUSHING [None]
  - HYPOTENSION [None]
  - VASOPLEGIA SYNDROME [None]
  - SINUS TACHYCARDIA [None]
  - TOXICITY TO VARIOUS AGENTS [None]
